FAERS Safety Report 9596764 (Version 4)
Quarter: 2014Q1

REPORT INFORMATION
  Report Type: Report from Study
  Country: FR (occurrence: FR)
  Receive Date: 20131004
  Receipt Date: 20140110
  Transmission Date: 20141002
  Serious: Yes (Death)
  Sender: FDA-Public Use
  Company Number: FR-CELGENEUS-056-C4047-13074360

PATIENT
  Age: 64 Year
  Sex: Female
  Weight: 50 kg

DRUGS (12)
  1. CC-4047 [Suspect]
     Indication: PLASMA CELL MYELOMA
     Dosage: 4 MILLIGRAM
     Route: 048
     Dates: start: 20121114, end: 20130319
  2. CC-4047 [Suspect]
     Dosage: 4 MILLIGRAM
     Route: 048
  3. DEXAMETHASONE [Concomitant]
     Indication: PLASMA CELL MYELOMA
     Dosage: 20 MILLIGRAM
     Route: 065
  4. DEXAMETHASONE [Concomitant]
     Dosage: 40 MILLIGRAM
     Route: 065
     Dates: start: 20121114, end: 20130319
  5. INNOHEP [Concomitant]
     Indication: THROMBOSIS PROPHYLAXIS
     Route: 065
  6. CORTANCYL [Concomitant]
     Indication: SYSTEMIC LUPUS ERYTHEMATOSUS
     Dosage: 25 MILLIGRAM
     Route: 065
  7. IDEOS [Concomitant]
     Indication: VITAMIN SUPPLEMENTATION
     Dosage: 500MG/400IU
     Route: 065
  8. KALEORID [Concomitant]
     Indication: HYPOKALAEMIA
     Dosage: 1200 MILLIGRAM
     Route: 065
  9. LEVOTHYROX [Concomitant]
     Indication: HYPOTHYROIDISM
     Dosage: 50 MICROGRAM
     Route: 065
  10. CARTEOL [Concomitant]
     Indication: INTRAOCULAR PRESSURE INCREASED
     Dosage: 2 PERCENT
     Route: 065
  11. ARIXTRA [Concomitant]
     Indication: PROPHYLAXIS
     Dosage: 2.5 MILLIGRAM
     Route: 058
     Dates: start: 20121114, end: 20130319
  12. ARANESP [Concomitant]
     Indication: ANAEMIA
     Route: 065

REACTIONS (5)
  - Weight decreased [Fatal]
  - Plasma cell myeloma [Fatal]
  - Bronchitis [Recovered/Resolved]
  - Asthenia [Recovered/Resolved]
  - Tremor [Recovered/Resolved]
